FAERS Safety Report 8248067-7 (Version None)
Quarter: 2012Q1

REPORT INFORMATION
  Report Type: 
  Country: None (occurrence: None)
  Receive Date: 20120330
  Receipt Date: 20110801
  Transmission Date: 20120608
  Serious: Yes (Other)
  Sender: FDA-Public Use
  Company Number: US-ROCHE-1054199

PATIENT
  Sex: Male

DRUGS (2)
  1. OMALIZUMAB [Suspect]
     Indication: ASTHMA
     Route: 058
     Dates: start: 20110801
  2. ADVAIR DISKUS 100/50 [Concomitant]
     Dosage: 250/50 UG

REACTIONS (1)
  - DYSPNOEA [None]
